FAERS Safety Report 4469045-X (Version None)
Quarter: 2004Q4

REPORT INFORMATION
  Report Type: 
  Country: None (occurrence: None)
  Receive Date: 20041004
  Receipt Date: 20041004
  Transmission Date: 20050328
  Serious: Yes (Other)
  Sender: FDA-Public Use
  Company Number: None

PATIENT
  Age: 55 Year
  Sex: Male
  Weight: 69.4 kg

DRUGS (11)
  1. PRAZOSIN HCL [Suspect]
  2. DIVALPROEX SODIUM [Concomitant]
  3. BUPROPION HCL [Concomitant]
  4. SERTRALINE HCL [Concomitant]
  5. ALBUTEROL [Concomitant]
  6. MULTI-VITAMIN [Concomitant]
  7. SILDENAFIL CITRATE [Concomitant]
  8. ACETAMINOPRHEN [Concomitant]
  9. FOLIC ACID [Concomitant]
  10. THIAMINE HCL [Concomitant]
  11. HYDROXYZINE PAMOATE [Concomitant]

REACTIONS (1)
  - RASH [None]
